FAERS Safety Report 22223049 (Version 1)
Quarter: 2023Q2

REPORT INFORMATION
  Report Type: Report from Study
  Country: US (occurrence: US)
  Receive Date: 20230418
  Receipt Date: 20230418
  Transmission Date: 20230721
  Serious: Yes (Hospitalization)
  Sender: FDA-Public Use
  Company Number: US-GILEAD-2023-0624766

PATIENT
  Sex: Female

DRUGS (1)
  1. AZTREONAM LYSINE [Suspect]
     Active Substance: AZTREONAM LYSINE
     Indication: Cystic fibrosis lung
     Dosage: 1 ML, TID (INHALE 1 VIAL (1 ML) VIA ALTERA NEBULIZER THREE TIMES DAILY ALTERNATING EVERY OTHER MONTH
     Route: 055

REACTIONS (1)
  - Condition aggravated [Unknown]
